FAERS Safety Report 7273582-2 (Version None)
Quarter: 2011Q1

REPORT INFORMATION
  Report Type: 
  Country: None (occurrence: None)
  Receive Date: 20110203
  Receipt Date: 20100806
  Transmission Date: 20110831
  Serious: No
  Sender: FDA-Public Use
  Company Number: US-ABBOTT-10P-163-0645462-00

PATIENT
  Sex: Male
  Weight: 77.18 kg

DRUGS (1)
  1. SYNTHROID [Suspect]
     Indication: HYPOTHYROIDISM
     Dates: start: 20100401

REACTIONS (3)
  - THYROID FUNCTION TEST ABNORMAL [None]
  - DYSGEUSIA [None]
  - WEIGHT DECREASED [None]
